FAERS Safety Report 8917194 (Version 2)
Quarter: 2013Q1

REPORT INFORMATION
  Report Type: Spontaneous
  Country: NL (occurrence: NL)
  Receive Date: 20121120
  Receipt Date: 20130125
  Transmission Date: 20140127
  Serious: Yes (Death)
  Sender: FDA-Public Use
  Company Number: PHHY2012NL105173

PATIENT
  Sex: Female

DRUGS (2)
  1. ZOMETA [Suspect]
     Indication: HYPERCALCAEMIA
     Dosage: 4 MG/100ML, ONCE EVERY 21 DAYS
     Dates: end: 20121105
  2. ZOMETA [Suspect]
     Indication: METASTASES TO UTERUS

REACTIONS (1)
  - Metastases to uterus [Fatal]
